FAERS Safety Report 7682188-2 (Version None)
Quarter: 2011Q3

REPORT INFORMATION
  Report Type: 
  Country: None (occurrence: None)
  Receive Date: 20110815
  Receipt Date: 20110810
  Transmission Date: 20111222
  Serious: Yes (Other)
  Sender: FDA-Public Use
  Company Number: US-PFIZER INC-2011153908

PATIENT
  Sex: Male
  Weight: 72.562 kg

DRUGS (3)
  1. CHANTIX [Suspect]
     Dosage: UNK
     Dates: start: 20110101
  2. IBUPROFEN [Concomitant]
     Dosage: 800 MG, UNK
  3. CHANTIX [Suspect]
     Indication: SMOKING CESSATION THERAPY
     Dosage: 0.5 MG, 1X/DAY
     Route: 048
     Dates: start: 20110101, end: 20110101

REACTIONS (8)
  - SUICIDAL BEHAVIOUR [None]
  - MOOD ALTERED [None]
  - APATHY [None]
  - IMPAIRED WORK ABILITY [None]
  - SUICIDAL IDEATION [None]
  - NEGATIVE THOUGHTS [None]
  - ABNORMAL BEHAVIOUR [None]
  - SCREAMING [None]
